FAERS Safety Report 19399989 (Version 2)
Quarter: 2022Q3

REPORT INFORMATION
  Report Type: Other
  Country: JP (occurrence: None)
  Receive Date: 20210610
  Receipt Date: 20220811
  Transmission Date: 20221026
  Serious: Yes (Other)
  Sender: FDA-Public Use
  Company Number: JP-ROCHE-2844452

PATIENT
  Age: 53 Year
  Sex: Female
  Weight: 63 kg

DRUGS (26)
  1. RITUXIMAB [Suspect]
     Active Substance: RITUXIMAB
     Indication: Prophylaxis against transplant rejection
     Dosage: 100 MG (RITUXIMAB (GENETICAL RECOMBINATION))
     Route: 041
     Dates: start: 20181221, end: 20181221
  2. IBUPROFEN [Concomitant]
     Active Substance: IBUPROFEN
     Indication: Premedication
     Route: 048
     Dates: start: 20181221, end: 20181221
  3. BEPOTASTINE BESYLATE [Concomitant]
     Active Substance: BEPOTASTINE BESYLATE
     Indication: Premedication
     Route: 048
     Dates: start: 20181221, end: 20181221
  4. TACROLIMUS [Concomitant]
     Active Substance: TACROLIMUS
     Indication: Prophylaxis against transplant rejection
     Route: 048
     Dates: start: 20190131, end: 20190131
  5. TACROLIMUS [Concomitant]
     Active Substance: TACROLIMUS
     Route: 048
     Dates: start: 20190215, end: 20190310
  6. TACROLIMUS [Concomitant]
     Active Substance: TACROLIMUS
     Route: 048
     Dates: start: 20190311
  7. TACROLIMUS [Concomitant]
     Active Substance: TACROLIMUS
     Route: 042
     Dates: start: 20190206, end: 20190214
  8. METHYLPREDNISOLONE SODIUM SUCCINATE [Concomitant]
     Active Substance: METHYLPREDNISOLONE SODIUM SUCCINATE
     Indication: Prophylaxis against transplant rejection
     Route: 042
     Dates: start: 20190207, end: 20190213
  9. METHYLPREDNISOLONE SODIUM SUCCINATE [Concomitant]
     Active Substance: METHYLPREDNISOLONE SODIUM SUCCINATE
     Route: 042
     Dates: start: 20190214, end: 20190216
  10. METHYLPREDNISOLONE SODIUM SUCCINATE [Concomitant]
     Active Substance: METHYLPREDNISOLONE SODIUM SUCCINATE
     Route: 042
     Dates: start: 20190217, end: 20190219
  11. METHYLPREDNISOLONE SODIUM SUCCINATE [Concomitant]
     Active Substance: METHYLPREDNISOLONE SODIUM SUCCINATE
     Route: 042
     Dates: start: 20200213, end: 20200214
  12. METHYLPREDNISOLONE SODIUM SUCCINATE [Concomitant]
     Active Substance: METHYLPREDNISOLONE SODIUM SUCCINATE
     Route: 042
     Dates: start: 20200215, end: 20200215
  13. METHYLPREDNISOLONE SODIUM SUCCINATE [Concomitant]
     Active Substance: METHYLPREDNISOLONE SODIUM SUCCINATE
     Route: 042
     Dates: start: 20200216, end: 20200216
  14. METHYLPREDNISOLONE SODIUM SUCCINATE [Concomitant]
     Active Substance: METHYLPREDNISOLONE SODIUM SUCCINATE
     Route: 042
     Dates: start: 20200217, end: 20200217
  15. METHYLPREDNISOLONE SODIUM SUCCINATE [Concomitant]
     Active Substance: METHYLPREDNISOLONE SODIUM SUCCINATE
     Route: 042
     Dates: start: 20200220, end: 20200220
  16. METHYLPREDNISOLONE SODIUM SUCCINATE [Concomitant]
     Active Substance: METHYLPREDNISOLONE SODIUM SUCCINATE
     Route: 042
     Dates: start: 20200221, end: 20200221
  17. METHYLPREDNISOLONE SODIUM SUCCINATE [Concomitant]
     Active Substance: METHYLPREDNISOLONE SODIUM SUCCINATE
     Route: 042
     Dates: start: 20200222, end: 20200222
  18. PREDONINE [Concomitant]
     Active Substance: PREDNISOLONE
     Indication: Prophylaxis against transplant rejection
     Route: 048
     Dates: start: 20190220, end: 20190305
  19. PREDONINE [Concomitant]
     Active Substance: PREDNISOLONE
     Route: 048
     Dates: start: 20190306, end: 20190310
  20. PREDONINE [Concomitant]
     Active Substance: PREDNISOLONE
     Route: 048
     Dates: start: 20190311, end: 20190513
  21. MYCOPHENOLATE MOFETIL [Concomitant]
     Active Substance: MYCOPHENOLATE MOFETIL
     Indication: Prophylaxis against transplant rejection
     Route: 048
     Dates: start: 20190131, end: 20190205
  22. MYCOPHENOLATE MOFETIL [Concomitant]
     Active Substance: MYCOPHENOLATE MOFETIL
     Route: 048
     Dates: start: 20190207, end: 20190212
  23. MYCOPHENOLATE MOFETIL [Concomitant]
     Active Substance: MYCOPHENOLATE MOFETIL
     Route: 048
     Dates: start: 20190213, end: 20190219
  24. MYCOPHENOLATE MOFETIL [Concomitant]
     Active Substance: MYCOPHENOLATE MOFETIL
     Route: 048
     Dates: start: 20190220, end: 20190315
  25. AMPICILLIN [Concomitant]
     Active Substance: AMPICILLIN
     Indication: Infection prophylaxis
     Route: 042
     Dates: start: 20190206, end: 20190209
  26. CLAFORAN [Concomitant]
     Active Substance: CEFOTAXIME SODIUM
     Indication: Infection prophylaxis
     Route: 042
     Dates: start: 20190206, end: 20190209

REACTIONS (2)
  - Paralysis recurrent laryngeal nerve [Recovered/Resolved]
  - Hepatic vein stenosis [Recovered/Resolved]

NARRATIVE: CASE EVENT DATE: 20190212
